FAERS Safety Report 8416036-X (Version None)
Quarter: 2012Q2

REPORT INFORMATION
  Report Type: 
  Country: None (occurrence: None)
  Receive Date: 20120606
  Receipt Date: 20120529
  Transmission Date: 20120825
  Serious: Yes (Death)
  Sender: FDA-Public Use
  Company Number: US-ROCHE-1034110

PATIENT
  Sex: Male

DRUGS (1)
  1. RITUXAN [Suspect]
     Indication: RHEUMATOID ARTHRITIS
     Dosage: DRUG: RITUXAN RA, PATIENT RECEIVED 2 DOSES
     Route: 042
     Dates: start: 20080424, end: 20080512

REACTIONS (1)
  - DEATH [None]
